FAERS Safety Report 11892142 (Version 1)
Quarter: 2016Q1

REPORT INFORMATION
  Report Type: Spontaneous
  Country: DK (occurrence: GB)
  Receive Date: 20160106
  Receipt Date: 20160106
  Transmission Date: 20160526
  Serious: Yes (Disabling, Other)
  Sender: FDA-Public Use
  Company Number: GB-FRI-1000081932

PATIENT
  Sex: Male

DRUGS (2)
  1. DIAZEPAM. [Concomitant]
     Active Substance: DIAZEPAM
     Indication: PRODUCT USED FOR UNKNOWN INDICATION
     Dosage: 5 MG AS NECESSARY
     Route: 065
  2. ESCITALOPRAM [Suspect]
     Active Substance: ESCITALOPRAM OXALATE
     Indication: PRODUCT USED FOR UNKNOWN INDICATION
     Dosage: 10 MG DAILY
     Route: 048
     Dates: start: 20150727, end: 20150927

REACTIONS (9)
  - Mood swings [Unknown]
  - Photosensitivity reaction [Unknown]
  - Disorientation [Unknown]
  - Paraesthesia [Unknown]
  - Blindness [Unknown]
  - Libido decreased [Unknown]
  - Feeling abnormal [Unknown]
  - Homicidal ideation [Unknown]
  - Anger [Unknown]
